FAERS Safety Report 6860970-9 (Version None)
Quarter: 2010Q3

REPORT INFORMATION
  Report Type: 
  Country: None (occurrence: None)
  Receive Date: 20100720
  Receipt Date: 20100709
  Transmission Date: 20110219
  Serious: Yes (Death, Other)
  Sender: FDA-Public Use
  Company Number: RU-JNJFOC-20100704381

PATIENT
  Sex: Male

DRUGS (1)
  1. VERMOX [Suspect]
     Indication: HEPATIC ECHINOCOCCIASIS
     Route: 065

REACTIONS (4)
  - ADVERSE EVENT [None]
  - HEPATIC FAILURE [None]
  - METABOLIC DISORDER [None]
  - THERAPEUTIC RESPONSE DECREASED [None]
